FAERS Safety Report 4898303-X (Version None)
Quarter: 2006Q1

REPORT INFORMATION
  Report Type: 
  Country: None (occurrence: None)
  Receive Date: 20060106
  Receipt Date: 20050121
  Transmission Date: 20060701
  Serious: Yes (Other)
  Sender: FDA-Public Use
  Company Number: HQWYE944228JAN05

PATIENT
  Age: 36 Year
  Sex: Female
  Weight: 42.22 kg

DRUGS (2)
  1. PRIMATENE MIST [Suspect]
     Indication: ASTHMA
     Dosage: 2 INHALANT 2X PER 1 DAY, INHALATION
     Route: 055
     Dates: end: 20050120
  2. ALBUTEROL [Concomitant]

REACTIONS (2)
  - CHOKING SENSATION [None]
  - PHARYNGOLARYNGEAL PAIN [None]
